FAERS Safety Report 25577245 (Version 1)
Quarter: 2025Q3

REPORT INFORMATION
  Report Type: Spontaneous
  Country: TH (occurrence: TH)
  Receive Date: 20250718
  Receipt Date: 20250718
  Transmission Date: 20251021
  Serious: Yes (Hospitalization, Other)
  Sender: RANBAXY
  Company Number: TH-SUN PHARMACEUTICAL INDUSTRIES LTD-2025R1-516618

PATIENT
  Age: 10 Year
  Sex: Male

DRUGS (5)
  1. ERYTHROMYCIN [Suspect]
     Active Substance: ERYTHROMYCIN
     Indication: Pityriasis lichenoides et varioliformis acuta
     Route: 048
  2. METHYLPREDNISOLONE [Suspect]
     Active Substance: METHYLPREDNISOLONE
     Indication: Pityriasis lichenoides et varioliformis acuta
     Dosage: 1.5 MILLIGRAM/KILOGRAM, QD
     Route: 042
  3. METHYLPREDNISOLONE [Suspect]
     Active Substance: METHYLPREDNISOLONE
     Dosage: 2.3 MILLIGRAM/KILOGRAM, QD
     Route: 042
  4. CEFTAZIDIME [Suspect]
     Active Substance: CEFTAZIDIME
     Indication: Pityriasis lichenoides et varioliformis acuta
     Route: 065
  5. CLOXACILLIN [Suspect]
     Active Substance: CLOXACILLIN
     Indication: Pityriasis lichenoides et varioliformis acuta
     Route: 065

REACTIONS (3)
  - Condition aggravated [Unknown]
  - Skin lesion [Recovering/Resolving]
  - Dermatitis exfoliative generalised [Recovering/Resolving]
